FAERS Safety Report 21272699 (Version 1)
Quarter: 2022Q3

REPORT INFORMATION
  Report Type: Spontaneous
  Country: US (occurrence: US)
  Receive Date: 20220831
  Receipt Date: 20220831
  Transmission Date: 20221026
  Serious: No
  Sender: FDA-Public Use
  Company Number: US-ELI_LILLY_AND_COMPANY-US202208015158

PATIENT
  Sex: Female

DRUGS (2)
  1. EMGALITY [Suspect]
     Active Substance: GALCANEZUMAB-GNLM
     Indication: Product used for unknown indication
     Dosage: UNK UNK, UNKNOWN
     Route: 065
     Dates: start: 202205
  2. ETODOLAC [Concomitant]
     Active Substance: ETODOLAC
     Indication: Pain
     Dosage: 1 DOSAGE FORM, BID

REACTIONS (2)
  - Stress [Unknown]
  - Headache [Unknown]
